FAERS Safety Report 25463495 (Version 2)
Quarter: 2025Q3

REPORT INFORMATION
  Report Type: Spontaneous
  Country: US (occurrence: US)
  Receive Date: 20250620
  Receipt Date: 20250806
  Transmission Date: 20251021
  Serious: No
  Sender: BIOMARIN
  Company Number: US-BIOMARINAP-US-2025-166507

PATIENT
  Age: 4 Month
  Sex: Male
  Weight: 6.168 kg

DRUGS (3)
  1. VOXZOGO [Suspect]
     Active Substance: VOSORITIDE
     Indication: Osteochondrodysplasia
     Dosage: 0.2 MILLIGRAM, QD
  2. VOXZOGO [Suspect]
     Active Substance: VOSORITIDE
     Indication: Bone disorder
  3. Vitamin d2 + k1 [Concomitant]
     Indication: Product used for unknown indication

REACTIONS (2)
  - Scratch [Unknown]
  - Device deployment issue [Unknown]

NARRATIVE: CASE EVENT DATE: 20250608
